FAERS Safety Report 12548393 (Version 1)
Quarter: 2016Q3

REPORT INFORMATION
  Report Type: Spontaneous
  Country: US (occurrence: US)
  Receive Date: 20160712
  Receipt Date: 20160712
  Transmission Date: 20161109
  Serious: Yes (Hospitalization)
  Sender: FDA-Public Use
  Company Number: US-SA-2016SA124295

PATIENT
  Age: 82 Year
  Sex: Male

DRUGS (4)
  1. TOUJEO [Suspect]
     Active Substance: INSULIN GLARGINE
     Dosage: MIXED WITH 20 UNITS OF ANOTHER INSULIN DOSE:10 UNIT(S)
     Route: 065
  2. SOLOSTAR [Concomitant]
     Active Substance: DEVICE
  3. TOUJEO [Suspect]
     Active Substance: INSULIN GLARGINE
     Dosage: DOSE:30 UNIT(S)
     Route: 065
  4. SOLOSTAR [Concomitant]
     Active Substance: DEVICE

REACTIONS (3)
  - Blood glucose increased [Unknown]
  - Pancreatic disorder [Unknown]
  - Intentional product misuse [Unknown]
